FAERS Safety Report 19189145 (Version 1)
Quarter: 2021Q2

REPORT INFORMATION
  Report Type: Report from Study
  Country: None (occurrence: US)
  Receive Date: 20210428
  Receipt Date: 20210428
  Transmission Date: 20210717
  Serious: Yes (Other)
  Sender: FDA-Public Use
  Company Number: US-ABBVIE-21K-163-3859113-00

PATIENT
  Sex: Female
  Weight: 93.52 kg

DRUGS (5)
  1. COVID?19 VACCINE NOS. [Concomitant]
     Active Substance: COVID-19 VACCINE NOS
     Indication: COVID-19 IMMUNISATION
     Dosage: PFIZER
     Route: 030
     Dates: start: 20210121, end: 20210121
  2. COVID?19 VACCINE NOS. [Concomitant]
     Active Substance: COVID-19 VACCINE NOS
     Dosage: PFIZER
     Route: 030
     Dates: start: 20210222, end: 20210222
  3. HUMIRA [Suspect]
     Active Substance: ADALIMUMAB
     Indication: RHEUMATOID ARTHRITIS
     Dosage: CITRATE FREE
     Route: 058
     Dates: start: 2017, end: 202103
  4. METHOTREXATE. [Concomitant]
     Active Substance: METHOTREXATE
     Indication: RHEUMATOID ARTHRITIS
  5. HUMIRA [Suspect]
     Active Substance: ADALIMUMAB
     Dosage: CITRATE FREE
     Route: 058
     Dates: start: 202104

REACTIONS (5)
  - Exostosis [Recovering/Resolving]
  - Arthralgia [Recovering/Resolving]
  - Chondropathy [Recovering/Resolving]
  - Osteoarthritis [Recovering/Resolving]
  - Pain [Recovering/Resolving]

NARRATIVE: CASE EVENT DATE: 2019
